FAERS Safety Report 5929467-4 (Version None)
Quarter: 2008Q4

REPORT INFORMATION
  Report Type: 
  Country: None (occurrence: None)
  Receive Date: 20081024
  Receipt Date: 20081017
  Transmission Date: 20090506
  Serious: Yes (Hospitalization)
  Sender: FDA-Public Use
  Company Number: AU-AVENTIS-200815668EU

PATIENT
  Age: 61 Year
  Sex: Male

DRUGS (5)
  1. RILUTEK [Suspect]
     Indication: MOTOR NEURONE DISEASE
     Dates: start: 20080616
  2. ASPIRIN [Concomitant]
     Dosage: DOSE: UNK
  3. GLUCOSAMINE [Concomitant]
     Dosage: DOSE: UNK
  4. GINKGO [Concomitant]
     Dosage: DOSE: UNK
  5. PANADOL                            /00020001/ [Concomitant]
     Dosage: DOSE: UNK

REACTIONS (2)
  - APHASIA [None]
  - WEIGHT DECREASED [None]
